FAERS Safety Report 5405354-5 (Version None)
Quarter: 2007Q3

REPORT INFORMATION
  Report Type: 
  Country: None (occurrence: None)
  Receive Date: 20070803
  Receipt Date: 20070727
  Transmission Date: 20080115
  Serious: Yes (Hospitalization)
  Sender: FDA-Public Use
  Company Number: GB-ABBOTT-07P-167-0375970-00

PATIENT
  Sex: Male
  Weight: 71 kg

DRUGS (15)
  1. HUMIRA [Suspect]
     Indication: RHEUMATOID ARTHRITIS
     Route: 058
     Dates: start: 20060112
  2. METHYLPREDNISOLONE ACETATE [Concomitant]
     Indication: DRUG USE FOR UNKNOWN INDICATION
  3. ASCORBIC ACID [Concomitant]
     Indication: DRUG USE FOR UNKNOWN INDICATION
  4. CLOPIDOGREL [Concomitant]
     Indication: DRUG USE FOR UNKNOWN INDICATION
  5. DI-GESIC [Concomitant]
     Indication: DRUG USE FOR UNKNOWN INDICATION
  6. FERROUS SULFATE [Concomitant]
     Indication: DRUG USE FOR UNKNOWN INDICATION
  7. FOLIC ACID [Concomitant]
     Indication: DRUG USE FOR UNKNOWN INDICATION
  8. LACIDIPINE [Concomitant]
     Indication: DRUG USE FOR UNKNOWN INDICATION
  9. METFORMIN HCL [Concomitant]
     Indication: DRUG USE FOR UNKNOWN INDICATION
  10. MOVELAT [Concomitant]
     Indication: DRUG USE FOR UNKNOWN INDICATION
  11. PANTOPRAZOLE SODIUM [Concomitant]
     Indication: DRUG USE FOR UNKNOWN INDICATION
  12. PRAVASTATIN [Concomitant]
     Indication: DRUG USE FOR UNKNOWN INDICATION
  13. SALBUTAMOL [Concomitant]
     Indication: DRUG USE FOR UNKNOWN INDICATION
  14. TELMISARTAN [Concomitant]
     Indication: DRUG USE FOR UNKNOWN INDICATION
  15. VITAMIN B [Concomitant]
     Indication: DRUG USE FOR UNKNOWN INDICATION

REACTIONS (1)
  - JOINT SWELLING [None]
